FAERS Safety Report 4637880-0 (Version None)
Quarter: 2005Q2

REPORT INFORMATION
  Report Type: 
  Country: None (occurrence: None)
  Receive Date: 20050418
  Receipt Date: 20031022
  Transmission Date: 20051028
  Serious: Yes (Other)
  Sender: FDA-Public Use
  Company Number: US-ROCHE-349829

PATIENT
  Age: 54 Year
  Sex: Male
  Weight: 78 kg

DRUGS (1)
  1. FUZEON [Suspect]
     Route: 058
     Dates: start: 20010110

REACTIONS (6)
  - FATIGUE [None]
  - INJECTION SITE INDURATION [None]
  - INJECTION SITE PAIN [None]
  - INJECTION SITE REACTION [None]
  - SKIN CANCER [None]
  - SKIN HYPERTROPHY [None]
